FAERS Safety Report 18312882 (Version 3)
Quarter: 2020Q4

REPORT INFORMATION
  Report Type: Spontaneous
  Country: US (occurrence: US)
  Receive Date: 20200925
  Receipt Date: 20201023
  Transmission Date: 20210113
  Serious: Yes (Life-Threatening, Other)
  Sender: FDA-Public Use
  Company Number: US-ASTRAZENECA-2020SF23213

PATIENT
  Age: 12094 Day
  Sex: Male
  Weight: 112.9 kg

DRUGS (15)
  1. COENZYME Q10 [Concomitant]
     Active Substance: DIETARY SUPPLEMENT\UBIDECARENONE
     Route: 048
  2. MONTELUKAST [Concomitant]
     Active Substance: MONTELUKAST SODIUM
     Route: 048
  3. BUTALBITAL/ACETAMINOPHEN/CAFFINE [Concomitant]
     Dosage: 50-325-40 MG TABS
  4. CYCLOBENZAPRINE HYDROCHLORIDE. [Concomitant]
     Active Substance: CYCLOBENZAPRINE HYDROCHLORIDE
     Dosage: 10 MG TABS
  5. LORATADINE. [Concomitant]
     Active Substance: LORATADINE
     Route: 048
  6. PAROXETINE. [Concomitant]
     Active Substance: PAROXETINE
     Route: 048
  7. ASPIRIN. [Concomitant]
     Active Substance: ASPIRIN
     Route: 048
  8. LIPITOR [Concomitant]
     Active Substance: ATORVASTATIN CALCIUM
     Route: 048
  9. LISINOPRIL. [Concomitant]
     Active Substance: LISINOPRIL
     Route: 048
  10. TESTOSTERONE CYPINOATE [Concomitant]
     Dosage: 200MG/ML INTRAMUSCUALR OIL, INJCET 0.5 ML ONCE A WEEK
  11. BUSPIRONE [Concomitant]
     Active Substance: BUSPIRONE HYDROCHLORIDE
     Route: 048
  12. DICLOFENAC, MISOPROSTOL [Concomitant]
     Dosage: DICLOFENAC- 75 MG, MISOPROSTOL 200 MG, 1 TAB TWICE A DAY BY ORAL ROUTE FOR 30 DAYS
  13. HYDROCODONE BITARTRATE AND ACETAMINOPHEN [Concomitant]
     Active Substance: ACETAMINOPHEN\HYDROCODONE BITARTRATE
     Dosage: HYDROCODONE 10 MG ACETAMINOPHEN 325 MG TABLET, 1 TABLET BY MOUTH THRE TIMES DAILY AS NEEDED.
  14. FARXIGA [Suspect]
     Active Substance: DAPAGLIFLOZIN PROPANEDIOL
     Indication: DIABETES MELLITUS
     Dosage: 10.0MG UNKNOWN
     Route: 048
     Dates: start: 20171008, end: 20200901
  15. FLUTICASONE PROPIONATE. [Concomitant]
     Active Substance: FLUTICASONE PROPIONATE
     Dosage: 50 MCG/ACTUATION NASAL SPRAY, SUSPENSION, 2 SPARYS IN EACH ONCE DAISLY

REACTIONS (2)
  - Ill-defined disorder [Unknown]
  - Diabetic ketoacidosis [Recovered/Resolved]

NARRATIVE: CASE EVENT DATE: 20200831
